FAERS Safety Report 10934324 (Version 5)
Quarter: 2015Q2

REPORT INFORMATION
  Report Type: Report from Study
  Country: NL (occurrence: NL)
  Receive Date: 20150320
  Receipt Date: 20150527
  Transmission Date: 20150821
  Serious: Yes (Hospitalization)
  Sender: FDA-Public Use
  Company Number: NL-SA-2015SA031980

PATIENT
  Age: 27 Year
  Sex: Female

DRUGS (12)
  1. CLOFARABINE [Suspect]
     Active Substance: CLOFARABINE
     Indication: ACUTE LYMPHOCYTIC LEUKAEMIA
     Route: 065
     Dates: start: 20141126, end: 20141127
  2. THIOGUANINE [Suspect]
     Active Substance: THIOGUANINE
     Route: 065
     Dates: start: 20150504, end: 20150505
  3. ADRIAMYCIN [Suspect]
     Active Substance: DOXORUBICIN HYDROCHLORIDE
     Route: 065
     Dates: start: 20150330, end: 20150413
  4. PEG-L-ASPARAGINASE [Suspect]
     Active Substance: PEGASPARGASE
     Dosage: DOSAGE: 1000 IE/M2
     Route: 065
     Dates: start: 20150403, end: 20150416
  5. CYTARABINE. [Suspect]
     Active Substance: CYTARABINE
     Route: 065
     Dates: start: 20150504, end: 20150505
  6. METHOTREXATE [Suspect]
     Active Substance: METHOTREXATE
     Route: 037
     Dates: start: 20150504, end: 20150504
  7. VINBLASTINE [Suspect]
     Active Substance: VINBLASTINE
     Route: 065
     Dates: start: 20150330, end: 20150413
  8. ETOPOSIDE. [Suspect]
     Active Substance: ETOPOSIDE
     Route: 065
     Dates: start: 20150504, end: 20150504
  9. DEXAMETHASONE. [Suspect]
     Active Substance: DEXAMETHASONE
     Route: 048
     Dates: start: 20150330, end: 20150408
  10. PREDNISONE. [Suspect]
     Active Substance: PREDNISONE
     Route: 037
     Dates: start: 20150504, end: 20150504
  11. CLOFARABINE [Suspect]
     Active Substance: CLOFARABINE
     Indication: ACUTE LYMPHOCYTIC LEUKAEMIA
     Route: 065
     Dates: start: 20150309, end: 20150311
  12. CLOFARABINE [Suspect]
     Active Substance: CLOFARABINE
     Indication: ACUTE LYMPHOCYTIC LEUKAEMIA
     Route: 065
     Dates: start: 20141127, end: 20141130

REACTIONS (2)
  - Bone pain [Recovered/Resolved]
  - Pancreatitis acute [Not Recovered/Not Resolved]

NARRATIVE: CASE EVENT DATE: 20150311
